FAERS Safety Report 6647579 (Version 3)
Quarter: 2014Q2

REPORT INFORMATION
  Report Type: Spontaneous
  Country: US (occurrence: US)
  Receive Date: 20080523
  Receipt Date: 20140403
  Transmission Date: 20141212
  Serious: Yes (Other)
  Sender: FDA-Public Use
  Company Number: US-ROCHE-527499

PATIENT
  Age: 39 Year
  Sex: Female
  Weight: 86.2 kg

DRUGS (2)
  1. ACCUTANE [Suspect]
     Indication: ACNE CYSTIC
     Route: 065
     Dates: start: 20010206, end: 20010630
  2. ACCUTANE [Suspect]
     Route: 065

REACTIONS (14)
  - Colitis [Unknown]
  - Inflammatory bowel disease [Unknown]
  - Depression [Unknown]
  - Cardiac valve disease [Unknown]
  - Dry skin [Unknown]
  - Blood cholesterol increased [Recovered/Resolved]
  - Alanine aminotransferase increased [Recovering/Resolving]
  - Aspartate aminotransferase increased [Recovered/Resolved]
  - Arthralgia [Unknown]
  - Oesophagitis [Unknown]
  - Duodenitis [Unknown]
  - Gastritis [Unknown]
  - Hiatus hernia [Unknown]
  - Gastrooesophageal reflux disease [Unknown]
